FAERS Safety Report 7199218-7 (Version None)
Quarter: 2010Q4

REPORT INFORMATION
  Report Type: 
  Country: None (occurrence: None)
  Receive Date: 20101223
  Receipt Date: 20101223
  Transmission Date: 20110411
  Serious: Yes (Other)
  Sender: FDA-Public Use
  Company Number: None

PATIENT
  Age: 72 Year
  Sex: Male
  Weight: 74.3 kg

DRUGS (1)
  1. MEGESTROL ACETATE [Suspect]
     Indication: PROSTATE CANCER
     Dosage: 400 MG EVERY DAY PO
     Route: 048
     Dates: start: 20101202

REACTIONS (1)
  - DEEP VEIN THROMBOSIS [None]
